FAERS Safety Report 9087100 (Version 1)
Quarter: 2013Q1

REPORT INFORMATION
  Report Type: Spontaneous
  Country: US (occurrence: US)
  Receive Date: 20130130
  Receipt Date: 20130130
  Transmission Date: 20140127
  Serious: No
  Sender: FDA-Public Use
  Company Number: US-ABBOTT-12P-163-0954054-00

PATIENT
  Sex: 0

DRUGS (6)
  1. HUMIRA 40 MG/ 0.8 ML PRE-FILLED SYRINGE [Suspect]
     Indication: PRODUCT USED FOR UNKNOWN INDICATION
     Dates: start: 201204
  2. METHOTREXATE [Concomitant]
     Indication: PRODUCT USED FOR UNKNOWN INDICATION
  3. CIPRALEX [Concomitant]
     Indication: PRODUCT USED FOR UNKNOWN INDICATION
  4. PROPANOL [Concomitant]
     Indication: PRODUCT USED FOR UNKNOWN INDICATION
  5. FOLIC ACID [Concomitant]
     Indication: PRODUCT USED FOR UNKNOWN INDICATION
  6. PREDNISOLONE [Concomitant]
     Indication: PRODUCT USED FOR UNKNOWN INDICATION
     Dosage: REDUCED FROM 10 TO NONE

REACTIONS (10)
  - Fatigue [Unknown]
  - Hypersomnia [Unknown]
  - Arthralgia [Unknown]
  - Influenza like illness [Unknown]
  - Malaise [Unknown]
  - Frequent bowel movements [Unknown]
  - Muscle spasms [Unknown]
  - Diarrhoea [Unknown]
  - Feeling abnormal [Unknown]
  - Sinus headache [Unknown]
